FAERS Safety Report 5502810-6 (Version None)
Quarter: 2007Q4

REPORT INFORMATION
  Report Type: 
  Country: None (occurrence: None)
  Receive Date: 20071031
  Receipt Date: 20071023
  Transmission Date: 20080405
  Serious: Yes (Other)
  Sender: FDA-Public Use
  Company Number: US-ASTRAZENECA-2007UW00529

PATIENT
  Age: 63 Year
  Sex: Female
  Weight: 81.6 kg

DRUGS (19)
  1. ARIMIDEX [Suspect]
     Indication: BREAST CANCER
     Route: 048
     Dates: start: 20051101, end: 20070903
  2. LIPITOR [Concomitant]
  3. TOPROL-XL [Concomitant]
     Route: 048
  4. BELLAMINE S [Concomitant]
     Indication: HOT FLUSH
  5. VITAMINS [Concomitant]
  6. CENTRUM SILVER [Concomitant]
  7. CALCIUM [Concomitant]
  8. VITAMIN E [Concomitant]
  9. ASCORBIC ACID [Concomitant]
  10. GREEN TEA [Concomitant]
  11. GRAPE SEED [Concomitant]
  12. ALEVE [Concomitant]
  13. DIOVAN [Concomitant]
  14. CALCIUM [Concomitant]
  15. CRANBERRY [Concomitant]
  16. TRENTAL [Concomitant]
  17. VITAMIN CAP [Concomitant]
  18. ELAVIL [Concomitant]
  19. BELLADONNA [Concomitant]

REACTIONS (21)
  - ALOPECIA [None]
  - ARTHRALGIA [None]
  - ARTHRITIS [None]
  - BURNING SENSATION [None]
  - DECREASED APPETITE [None]
  - DEPRESSION [None]
  - DIABETES MELLITUS [None]
  - ERYTHEMA [None]
  - GASTRIC OPERATION [None]
  - HERNIA HIATUS REPAIR [None]
  - HERPES ZOSTER [None]
  - HYPERACUSIS [None]
  - MUSCULOSKELETAL CHEST PAIN [None]
  - MUSCULOSKELETAL PAIN [None]
  - NEUROPATHY PERIPHERAL [None]
  - PAIN [None]
  - PAIN IN EXTREMITY [None]
  - PARAESTHESIA [None]
  - RASH ERYTHEMATOUS [None]
  - TENDERNESS [None]
  - WEIGHT DECREASED [None]
